FAERS Safety Report 5087544-7 (Version None)
Quarter: 2006Q3

REPORT INFORMATION
  Report Type: 
  Country: None (occurrence: None)
  Receive Date: 20060824
  Receipt Date: 20060817
  Transmission Date: 20061208
  Serious: Yes (Hospitalization)
  Sender: FDA-Public Use
  Company Number: JP-JPN-A200603213

PATIENT
  Age: 4 Year
  Sex: Female
  Weight: 18 kg

DRUGS (5)
  1. VENETLIN [Suspect]
     Indication: ACCIDENTAL EXPOSURE
     Dosage: 48ML PER DAY
     Route: 048
     Dates: start: 20060816, end: 20060816
  2. PERIACTIN [Concomitant]
     Indication: ACCIDENTAL EXPOSURE
     Dosage: 32ML PER DAY
     Route: 048
     Dates: start: 20060816, end: 20060816
  3. SENEGA [Concomitant]
     Indication: ACCIDENTAL EXPOSURE
     Dosage: 16ML PER DAY
     Route: 048
     Dates: start: 20060816, end: 20060816
  4. ASTOMIN [Concomitant]
     Indication: ACCIDENTAL EXPOSURE
     Dosage: 24ML PER DAY
     Route: 048
     Dates: start: 20060816, end: 20060816
  5. MUCOSOLVAN [Concomitant]
     Indication: ACCIDENTAL EXPOSURE
     Dosage: 16ML PER DAY
     Route: 048
     Dates: start: 20060816, end: 20060816

REACTIONS (3)
  - ABDOMINAL PAIN [None]
  - TACHYCARDIA [None]
  - VOMITING [None]
